FAERS Safety Report 4316954-8 (Version None)
Quarter: 2004Q1

REPORT INFORMATION
  Report Type: 
  Country: None (occurrence: None)
  Receive Date: 20040312
  Receipt Date: 20040227
  Transmission Date: 20041129
  Serious: Yes (Hospitalization)
  Sender: FDA-Public Use
  Company Number: USA-2002-003478

PATIENT
  Age: 64 Year
  Sex: Female

DRUGS (6)
  1. BETASERON [Suspect]
     Indication: MULTIPLE SCLEROSIS
     Dosage: 8 MIU, EVER 2D, SUBCUTANEOUS
     Route: 058
     Dates: start: 19941229, end: 20030325
  2. BACLOFEN [Concomitant]
  3. NEURONTIN [Concomitant]
  4. CYPROHEPTADINE HCL [Concomitant]
  5. TERBUTALINE SULFATE [Concomitant]
  6. PROZAC [Concomitant]

REACTIONS (8)
  - ANKLE FRACTURE [None]
  - BLOOD CALCIUM DECREASED [None]
  - CELLULITIS [None]
  - CONDITION AGGRAVATED [None]
  - FALL [None]
  - LIVER FUNCTION TEST ABNORMAL [None]
  - MULTIPLE SCLEROSIS [None]
  - PYREXIA [None]
